FAERS Safety Report 5878523-8 (Version None)
Quarter: 2008Q3

REPORT INFORMATION
  Report Type: 
  Country: None (occurrence: None)
  Receive Date: 20080911
  Receipt Date: 20080905
  Transmission Date: 20090109
  Serious: Yes (Other)
  Sender: FDA-Public Use
  Company Number: BE-AMGEN-UK306306

PATIENT

DRUGS (1)
  1. VECTIBIX [Suspect]
     Indication: DRUG USE FOR UNKNOWN INDICATION
     Route: 065
     Dates: start: 20080822

REACTIONS (8)
  - ANAL HAEMORRHAGE [None]
  - EPISTAXIS [None]
  - EYELID IRRITATION [None]
  - LACRIMAL DISORDER [None]
  - LACRIMATION INCREASED [None]
  - PRURITUS GENERALISED [None]
  - RASH [None]
  - VAGINAL HAEMORRHAGE [None]
